FAERS Safety Report 4554881-1 (Version None)
Quarter: 2004Q4

REPORT INFORMATION
  Report Type: 
  Country: None (occurrence: None)
  Receive Date: 20041222
  Receipt Date: 20040923
  Transmission Date: 20050328
  Serious: Yes (Hospitalization)
  Sender: FDA-Public Use
  Company Number: 208983

PATIENT
  Age: 69 Year
  Sex: Female
  Weight: 53.1 kg

DRUGS (7)
  1. AVASTIN [Suspect]
     Indication: COLON CANCER
     Dosage: 300 MG, Q2W, INTRAVENOUS
     Route: 042
     Dates: start: 20040426
  2. MARNOL (DRONABINOL) [Concomitant]
  3. ATIVAN [Concomitant]
  4. VERAPAMIL (VERAPAMIL HYIDROCHLORIDE) [Concomitant]
  5. GLUCOPHAGE [Concomitant]
  6. CELEBREX [Concomitant]
  7. FOLIC ACID [Concomitant]

REACTIONS (1)
  - CONFUSIONAL STATE [None]
